FAERS Safety Report 23847482 (Version 2)
Quarter: 2024Q2

REPORT INFORMATION
  Report Type: Other
  Country: NL (occurrence: NL)
  Receive Date: 20240513
  Receipt Date: 20240604
  Transmission Date: 20240715
  Serious: Yes (Hospitalization)
  Sender: FDA-Public Use
  Company Number: NL-ALVOGEN-2024094582

PATIENT
  Age: 52 Year
  Sex: Male

DRUGS (7)
  1. DISULFIRAM [Suspect]
     Active Substance: DISULFIRAM
     Indication: Alcohol abuse
     Dosage: FOR FOUR YEARS
  2. DISULFIRAM [Suspect]
     Active Substance: DISULFIRAM
     Indication: Alcohol abuse
     Dosage: PATIENT RECENTLY RAISED THIS TO 400 MG DAILY.
  3. DISULFIRAM [Suspect]
     Active Substance: DISULFIRAM
     Indication: Alcohol abuse
     Dosage: FOR FOUR YEARS
  4. DISULFIRAM [Suspect]
     Active Substance: DISULFIRAM
     Indication: Alcohol abuse
     Dosage: PATIENT RECENTLY RAISED THIS TO 400 MG DAILY.
  5. PAROXETINE [Concomitant]
     Active Substance: PAROXETINE
     Indication: Anxiety
     Dosage: LONG-TIME
  6. AMITRIPTYLINE [Concomitant]
     Active Substance: AMITRIPTYLINE
     Indication: Anxiety
     Dosage: LONG-TIME
  7. QUETIAPINE [Concomitant]
     Active Substance: QUETIAPINE
     Indication: Anxiety
     Dosage: RECENTLY ADDED

REACTIONS (2)
  - Toxic encephalopathy [Recovering/Resolving]
  - Accidental overdose [Unknown]
